FAERS Safety Report 6287716-X (Version None)
Quarter: 2009Q3

REPORT INFORMATION
  Report Type: 
  Country: None (occurrence: None)
  Receive Date: 20090727
  Receipt Date: 20090727
  Transmission Date: 20100115
  Serious: Yes (Hospitalization)
  Sender: FDA-Public Use
  Company Number: None

PATIENT
  Sex: Male
  Weight: 110.6777 kg

DRUGS (4)
  1. CIPROFLOXACIN [Suspect]
     Indication: CAUSTIC INJURY
     Dosage: 1 TABLET, TWICE DAILY, PO
     Route: 048
     Dates: start: 20090516, end: 20090525
  2. FLEXIRILL [Concomitant]
  3. PERCOCET [Concomitant]
  4. HYDROCODONE [Concomitant]

REACTIONS (5)
  - DIZZINESS [None]
  - IMPAIRED WORK ABILITY [None]
  - LOSS OF CONSCIOUSNESS [None]
  - NAUSEA [None]
  - TENDON RUPTURE [None]
